FAERS Safety Report 5291365-X (Version None)
Quarter: 2007Q2

REPORT INFORMATION
  Report Type: 
  Country: None (occurrence: None)
  Receive Date: 20070402
  Receipt Date: 20070319
  Transmission Date: 20071010
  Serious: Yes (Other)
  Sender: FDA-Public Use
  Company Number: 230001M07HUN

PATIENT
  Age: 45 Year
  Sex: Female

DRUGS (3)
  1. REBIF [Suspect]
     Indication: MULTIPLE SCLEROSIS
     Dosage: 22, 3 IN 1 WEEKS,
     Dates: start: 20010608, end: 20040301
  2. REBIF [Suspect]
     Indication: MULTIPLE SCLEROSIS
     Dosage: 22, 3 IN 1 WEEKS,
     Dates: start: 20040301
  3. RAMIPRIL [Concomitant]

REACTIONS (4)
  - CHOLECYSTITIS [None]
  - HEPATIC CYST [None]
  - HYPERTENSION [None]
  - RENAL CYST [None]
